FAERS Safety Report 5892318-0 (Version None)
Quarter: 2008Q3

REPORT INFORMATION
  Report Type: 
  Country: None (occurrence: None)
  Receive Date: 20080922
  Receipt Date: 20080912
  Transmission Date: 20090109
  Serious: Yes (Other)
  Sender: FDA-Public Use
  Company Number: US-JNJCH-2008023851

PATIENT
  Age: 69 Year
  Sex: Female
  Weight: 49.9 kg

DRUGS (1)
  1. ROGAINE [Suspect]
     Indication: ALOPECIA
     Dosage: TEXT:ONE ML TWICE A DAY
     Route: 061

REACTIONS (2)
  - DERMATITIS [None]
  - HYPERSENSITIVITY [None]
